FAERS Safety Report 11072328 (Version 1)
Quarter: 2015Q2

REPORT INFORMATION
  Report Type: Spontaneous
  Country: None (occurrence: None)
  Receive Date: 20150427
  Receipt Date: 20150427
  Transmission Date: 20150821
  Serious: Yes (Life-Threatening, Hospitalization)
  Sender: FDA-Public Use
  Company Number: None

PATIENT
  Age: 65 Year
  Sex: Male
  Weight: 105.69 kg

DRUGS (12)
  1. ACETAMINOPHEN AND CODEINE [Concomitant]
     Active Substance: ACETAMINOPHEN\CODEINE PHOSPHATE
  2. BUPROPION HCL [Concomitant]
     Active Substance: BUPROPION HYDROCHLORIDE
  3. CLOTRIMAZOLE. [Concomitant]
     Active Substance: CLOTRIMAZOLE
  4. LEVOTHYROXINE NA [Concomitant]
  5. LORAZEPAM. [Concomitant]
     Active Substance: LORAZEPAM
  6. NAPROXEN. [Concomitant]
     Active Substance: NAPROXEN
  7. QUETIAPINE FUMARATE. [Concomitant]
     Active Substance: QUETIAPINE FUMARATE
  8. UREA. [Concomitant]
     Active Substance: UREA
  9. DIVALPROEX 500 MG [Suspect]
     Active Substance: DIVALPROEX SODIUM
     Indication: BIPOLAR DISORDER
     Dosage: 1 QD ORAL
     Route: 048
     Dates: start: 20090122, end: 20140908
  10. CARBOXYMETHYLCELLULOSE NA [Concomitant]
  11. DIPHENHYDRAMINE HCL [Concomitant]
     Active Substance: DIPHENHYDRAMINE HYDROCHLORIDE
  12. TRIAMCINOLONE ACETONIDE. [Concomitant]
     Active Substance: TRIAMCINOLONE ACETONIDE

REACTIONS (3)
  - Bleeding time prolonged [None]
  - Thrombocytopenia [None]
  - Contusion [None]

NARRATIVE: CASE EVENT DATE: 20140903
